FAERS Safety Report 7449432-8 (Version None)
Quarter: 2011Q2

REPORT INFORMATION
  Report Type: 
  Country: None (occurrence: None)
  Receive Date: 20110502
  Receipt Date: 20110422
  Transmission Date: 20111010
  Serious: No
  Sender: FDA-Public Use
  Company Number: US-BIOGENIDEC-2011BI015223

PATIENT
  Sex: Female

DRUGS (2)
  1. AVONEX [Suspect]
     Indication: MULTIPLE SCLEROSIS
     Route: 030
     Dates: start: 20040409
  2. AVONEX [Suspect]
     Route: 030

REACTIONS (8)
  - SENSORY DISTURBANCE [None]
  - PARAESTHESIA [None]
  - LOSS OF CONTROL OF LEGS [None]
  - BALANCE DISORDER [None]
  - HYPOAESTHESIA [None]
  - MOBILITY DECREASED [None]
  - MUSCULOSKELETAL STIFFNESS [None]
  - HEADACHE [None]
